FAERS Safety Report 6635461-0 (Version None)
Quarter: 2010Q1

REPORT INFORMATION
  Report Type: 
  Country: None (occurrence: None)
  Receive Date: 20100315
  Receipt Date: 20090918
  Transmission Date: 20100710
  Serious: Yes (Other)
  Sender: FDA-Public Use
  Company Number: US-ABBOTT-08P-163-0487171-00

PATIENT
  Sex: Female
  Weight: 64.014 kg

DRUGS (4)
  1. DEPAKOTE [Suspect]
     Indication: CONVULSION
     Dosage: 1 - 250 MG TAB TWICE DAILY AND EVERY 3RD NIGHT TAKES EXTRA DOSE
     Route: 048
     Dates: start: 19800101
  2. KEPPRA [Concomitant]
     Indication: CONVULSION
     Dosage: 2 TAB AM 3 TAB AT NIGHT
  3. LAMICTAL CD [Concomitant]
     Indication: CONVULSION
  4. ATIVAN [Concomitant]
     Indication: CONVULSION

REACTIONS (1)
  - CONVULSION [None]
